FAERS Safety Report 17016751 (Version 4)
Quarter: 2020Q3

REPORT INFORMATION
  Report Type: Spontaneous
  Country: DE (occurrence: DE)
  Receive Date: 20191111
  Receipt Date: 20200924
  Transmission Date: 20201102
  Serious: Yes (Other)
  Sender: FDA-Public Use
  Company Number: DE-ASTRAZENECA-2019SF57458

PATIENT
  Age: 78 Year
  Sex: Female

DRUGS (7)
  1. DABRAFENIB [Suspect]
     Active Substance: DABRAFENIB
     Indication: PRODUCT USED FOR UNKNOWN INDICATION
     Route: 065
  2. DABRAFENIB [Suspect]
     Active Substance: DABRAFENIB
     Indication: PRODUCT USED FOR UNKNOWN INDICATION
     Dosage: REDUCED
     Route: 065
  3. GILOTRIF [Suspect]
     Active Substance: AFATINIB
     Indication: ADENOCARCINOMA
     Route: 065
     Dates: start: 20170303, end: 20170522
  4. DACOMITINIB [Suspect]
     Active Substance: DACOMITINIB
     Route: 065
     Dates: start: 20191126
  5. OSIMERTINIB. [Suspect]
     Active Substance: OSIMERTINIB
     Indication: PRODUCT USED FOR UNKNOWN INDICATION
     Route: 048
     Dates: start: 20190129
  6. DACOMITINIB [Suspect]
     Active Substance: DACOMITINIB
     Route: 065
     Dates: start: 20191227
  7. GILOTRIF [Suspect]
     Active Substance: AFATINIB
     Indication: ADENOCARCINOMA
     Route: 065
     Dates: start: 20170523, end: 20190128

REACTIONS (11)
  - Lymphangiosis carcinomatosa [Unknown]
  - Rash pustular [Unknown]
  - Paronychia [Unknown]
  - Effusion [Unknown]
  - Oesophageal stenosis [Unknown]
  - Malignant neoplasm progression [Unknown]
  - Rash [Unknown]
  - Malignant neoplasm of pleura [Unknown]
  - Toxicity to various agents [Unknown]
  - Dyspnoea [Unknown]
  - Diarrhoea [Unknown]

NARRATIVE: CASE EVENT DATE: 20181105
